FAERS Safety Report 6818414-9 (Version None)
Quarter: 2010Q3

REPORT INFORMATION
  Report Type: 
  Country: None (occurrence: None)
  Receive Date: 20100706
  Receipt Date: 20071218
  Transmission Date: 20110219
  Serious: No
  Sender: FDA-Public Use
  Company Number: US-PFIZER INC-2007103476

PATIENT
  Age: 77 Year
  Sex: Female

DRUGS (3)
  1. ZITHROMAX [Suspect]
     Indication: INFECTION
     Route: 048
     Dates: start: 20071126, end: 20071130
  2. ZITHROMAX [Suspect]
     Indication: COUGH
  3. TYLENOL [Concomitant]

REACTIONS (1)
  - DRUG INEFFECTIVE [None]
